FAERS Safety Report 25063980 (Version 1)
Quarter: 2025Q1

REPORT INFORMATION
  Report Type: Spontaneous
  Country: IT (occurrence: IT)
  Receive Date: 20250311
  Receipt Date: 20250311
  Transmission Date: 20250409
  Serious: Yes (Hospitalization)
  Sender: DAIICHI
  Company Number: None

PATIENT
  Age: 73 Year
  Sex: Female
  Weight: 70 kg

DRUGS (14)
  1. ENHERTU [Suspect]
     Active Substance: FAM-TRASTUZUMAB DERUXTECAN-NXKI
     Indication: Breast cancer recurrent
     Dosage: 5.4 MG/KG, ONCE EVERY 3 WK
     Route: 042
     Dates: start: 20230609, end: 20240827
  2. ONDANSETRON [Concomitant]
     Active Substance: ONDANSETRON
     Indication: Vomiting
     Dosage: 8 MG, ONCE EVERY 3 WK (8 MG TOGETHER WITH ENHERTU Q3W)
     Route: 042
     Dates: start: 20230609, end: 20240827
  3. DEXAMETHASONE [Concomitant]
     Active Substance: DEXAMETHASONE
     Indication: Vomiting
     Dosage: 8 MG, ONCE EVERY 3 WK (8 MG TOGETHER WITH ENHERTU Q3W)
     Route: 042
     Dates: start: 20230609, end: 20240827
  4. APREPITANT [Concomitant]
     Active Substance: APREPITANT
     Indication: Vomiting
     Dosage: 125 MG, ONCE EVERY 3 WK (125 MG TOGETHER WITH ENHERTU Q3W)
     Route: 042
     Dates: start: 20230609, end: 20240827
  5. ACETAMINOPHEN [Concomitant]
     Active Substance: ACETAMINOPHEN
     Indication: Analgesic intervention supportive therapy
     Dosage: 500 MG, ONCE EVERY 3 WK (500 MG TOGETHER WITH ENHERTU Q3W)
     Route: 042
     Dates: start: 20230609, end: 20240827
  6. METOCLOPRAMIDE HYDROCHLORIDE [Concomitant]
     Active Substance: METOCLOPRAMIDE HYDROCHLORIDE
     Indication: Vomiting
     Route: 048
     Dates: start: 20230609
  7. TAPAZOLE [Concomitant]
     Active Substance: METHIMAZOLE
     Indication: Hyperthyroidism
     Route: 048
  8. CHOLECALCIFEROL [Concomitant]
     Active Substance: CHOLECALCIFEROL
     Indication: Hypovitaminosis
     Route: 048
  9. LOPERAMIDE HYDROCHLORIDE [Concomitant]
     Active Substance: LOPERAMIDE HYDROCHLORIDE
     Indication: Diarrhoea
     Route: 048
  10. CETIRIZINE HYDROCHLORIDE [Concomitant]
     Active Substance: CETIRIZINE HYDROCHLORIDE
     Indication: Pruritus
     Route: 048
  11. LANSOPRAZOLE [Concomitant]
     Active Substance: LANSOPRAZOLE
     Indication: Gastrooesophageal reflux prophylaxis
     Route: 048
  12. ONDANSETRON [Concomitant]
     Active Substance: ONDANSETRON
     Indication: Vomiting
     Route: 048
  13. DEXAMETHASONE SODIUM PHOSPHATE [Concomitant]
     Active Substance: DEXAMETHASONE SODIUM PHOSPHATE
     Indication: Product used for unknown indication
     Route: 048
  14. BUPRENORPHINE [Concomitant]
     Active Substance: BUPRENORPHINE
     Indication: Pain
     Route: 003

REACTIONS (1)
  - Cold type haemolytic anaemia [Recovered/Resolved with Sequelae]

NARRATIVE: CASE EVENT DATE: 20240916
